FAERS Safety Report 15984838 (Version 1)
Quarter: 2019Q1

REPORT INFORMATION
  Report Type: Spontaneous
  Country: GB (occurrence: GB)
  Receive Date: 20190220
  Receipt Date: 20190220
  Transmission Date: 20190418
  Serious: Yes (Death)
  Sender: FDA-Public Use
  Company Number: GB-HONG KONG KING-FRIEND INDUSTRIAL COMPANY-2019NKF00003

PATIENT

DRUGS (5)
  1. PATRITUMAB [Concomitant]
     Active Substance: PATRITUMAB
     Dosage: 18 MG/KG, ONCE
     Route: 042
  2. CETUXIMAB. [Suspect]
     Active Substance: CETUXIMAB
     Dosage: 250 MG/M2, 1X/WEEK
     Route: 042
  3. PATRITUMAB [Concomitant]
     Active Substance: PATRITUMAB
     Dosage: 9 MG/KG, EVERY 3 WEEKS
     Route: 042
  4. CARBOPLATIN. [Suspect]
     Active Substance: CARBOPLATIN
     Indication: SQUAMOUS CELL CARCINOMA OF HEAD AND NECK
     Dosage: 5 AUC
     Route: 042
  5. CETUXIMAB. [Suspect]
     Active Substance: CETUXIMAB
     Indication: SQUAMOUS CELL CARCINOMA OF HEAD AND NECK
     Dosage: 400 MG/M2, ONCE
     Route: 042

REACTIONS (1)
  - Cardiac arrest [Fatal]
